FAERS Safety Report 7248865-2 (Version None)
Quarter: 2011Q1

REPORT INFORMATION
  Report Type: 
  Country: None (occurrence: None)
  Receive Date: 20110128
  Receipt Date: 20100615
  Transmission Date: 20110831
  Serious: Yes (Hospitalization, Other)
  Sender: FDA-Public Use
  Company Number: US-BAYER-200943079NA

PATIENT
  Sex: Female
  Weight: 74 kg

DRUGS (17)
  1. YASMIN [Suspect]
     Indication: PREMENSTRUAL SYNDROME
  2. ALBUTEROL [Concomitant]
     Route: 055
  3. ASPIRIN [Concomitant]
  4. IBUPROFEN [Concomitant]
  5. HISTINEX HC [Concomitant]
  6. ROCEPHIN [Concomitant]
  7. HEPARIN [Concomitant]
     Dosage: HEPARIN DRIP
  8. XANAX [Concomitant]
  9. LEXAPRO [Concomitant]
  10. YASMIN [Suspect]
     Indication: MENSTRUAL DISORDER
  11. LOVENOX [Concomitant]
     Dosage: 1MG/KG
     Route: 058
  12. COUMADIN [Concomitant]
  13. YASMIN [Suspect]
     Indication: ACNE
     Dosage: PHARMACY RECORDS: YASMIN 28 DISPENSED 21 DEC 2005.
     Dates: start: 20051109, end: 20051228
  14. PROVENTIL [Concomitant]
  15. HOMEOPATIC PREPARATION [Concomitant]
  16. UNCODEABLE ^UNCLASSIFIABLE^ [Concomitant]
  17. COUGH AND COLD PREPARATIONS [Concomitant]

REACTIONS (16)
  - MUSCULOSKELETAL CHEST PAIN [None]
  - HAEMOPTYSIS [None]
  - VOMITING [None]
  - PULMONARY INFARCTION [None]
  - PANIC ATTACK [None]
  - COUGH [None]
  - PYREXIA [None]
  - NIGHT SWEATS [None]
  - DYSPNOEA [None]
  - BRONCHITIS [None]
  - DIAPHRAGMALGIA [None]
  - PULMONARY EMBOLISM [None]
  - DIARRHOEA [None]
  - NAUSEA [None]
  - CHOKING SENSATION [None]
  - ANXIETY [None]
